FAERS Safety Report 23603252 (Version 1)
Quarter: 2024Q1

REPORT INFORMATION
  Report Type: Report from Study
  Country: US (occurrence: US)
  Receive Date: 20240307
  Receipt Date: 20240307
  Transmission Date: 20240410
  Serious: Yes (Hospitalization)
  Sender: FDA-Public Use
  Company Number: US-ABBVIE-5662176

PATIENT
  Sex: Male

DRUGS (42)
  1. VENCLEXTA [Suspect]
     Active Substance: VENETOCLAX
     Indication: Acute myeloid leukaemia
     Dosage: TAKE 1 TAB BY MOUTH DAILY?FORM STRENGTH: 50 MG
     Route: 048
  2. VENCLEXTA [Suspect]
     Active Substance: VENETOCLAX
     Indication: Acute myeloid leukaemia
     Dosage: FORM STRENGTH: 100 MG
     Route: 048
     Dates: start: 20231208, end: 20240105
  3. VENCLEXTA [Suspect]
     Active Substance: VENETOCLAX
     Indication: Acute myeloid leukaemia
     Dosage: TAKE 100MG BY MOUTH DAILY DAYS 1-21 EVERY 28 DAY(S)?FORM STRENGTH: 100 MG
     Route: 048
  4. ZOVIRAX [Concomitant]
     Active Substance: ACYCLOVIR
     Indication: Product used for unknown indication
     Dosage: IF ADMINISTERING VIA TUBE FEEDS, CRUSH TABLET AND DISSOLVE IN 20 ML WATER?FORM STRENGTH: 400 MG
     Route: 048
     Dates: end: 20231213
  5. ZOVIRAX [Concomitant]
     Active Substance: ACYCLOVIR
     Indication: Product used for unknown indication
     Dosage: LAST ADMIN DATE WAS 2023?FORM STRENGTH: 400 MG
     Route: 048
     Dates: start: 20231130
  6. MOTRIN [Concomitant]
     Active Substance: IBUPROFEN
     Indication: Pain
     Dosage: FORM STRENGTH: 200 MG
     Route: 048
  7. ROBITUSSIN (GUAIFENESIN) [Concomitant]
     Active Substance: GUAIFENESIN
     Indication: Cough
     Dosage: 10 ML =200 MG (CONC. 20 MG/ ML ), AS NEEDED, LAST ADMIN: 13-DEC-2023?CHEST CONGESTION?FORM STRENG...
     Route: 048
     Dates: start: 20231210, end: 20231213
  8. SYMMETREL [Concomitant]
     Active Substance: AMANTADINE HYDROCHLORIDE
     Indication: Product used for unknown indication
     Dosage: FORM STRENGTH: 100 MG
     Route: 048
  9. BUSPAR [Concomitant]
     Active Substance: BUSPIRONE HYDROCHLORIDE
     Indication: Product used for unknown indication
     Dosage: TIME INTERVAL: 0.33333333 DAYS: 1.5 TAB (1.5 X 10 MG TAB ), INTERACTS WITH GRAPEFRUIT, THREE TIME...
     Route: 048
     Dates: start: 20231202, end: 20231213
  10. ALDACTONE [Concomitant]
     Active Substance: SPIRONOLACTONE
     Indication: Product used for unknown indication
     Dosage: TAKE WITH FOOD, LAST ADMIN :12-DEC-2023?FORM STRENGTH: 12.5 MG
     Route: 048
     Dates: start: 20231201, end: 20231212
  11. ZANAFLEX [Concomitant]
     Active Substance: TIZANIDINE HYDROCHLORIDE
     Indication: Product used for unknown indication
     Dosage: TIME INTERVAL: 0.33333333 DAYS: FORM STRENGTH: 4 MG
     Route: 048
     Dates: start: 20231205, end: 20231213
  12. TOPROL XL [Concomitant]
     Active Substance: METOPROLOL SUCCINATE
     Indication: Product used for unknown indication
     Dosage: XL
     Route: 048
     Dates: start: 20231201, end: 20231213
  13. REMERON [Concomitant]
     Active Substance: MIRTAZAPINE
     Indication: Product used for unknown indication
     Dosage: TAKE 45 MG AT BEDTIME?FORM STRENGTH: 45 MG
     Route: 048
     Dates: start: 20231204
  14. HEPARIN LOCK FLUSH [Concomitant]
     Active Substance: HEPARIN SODIUM
     Indication: Product used for unknown indication
     Dosage: FLUSH WITH 3 ML AFTER NS AFTER EACH DRUG OR AFTER EACH BLOOD DRAW OR CONTINUE IV FLUIDS?FORM STRE...
     Route: 042
  15. HEPARIN LOCK FLUSH [Concomitant]
     Active Substance: HEPARIN SODIUM
     Indication: Product used for unknown indication
     Dosage: TIME INTERVAL: 0.33333333 DAYS: DISCHARGE 10 ML NS, THEN HEPARIN 3 ML/DAY PER LUMEN?FORM STRENGTH...
     Route: 042
     Dates: start: 20231201
  16. SENOKOT [Concomitant]
     Active Substance: SENNOSIDES
     Indication: Product used for unknown indication
     Dosage: LAST ADMIN : 07-DEC-2023?FORM STRENGTH: 8.6 MG
     Route: 048
     Dates: start: 20231204, end: 20231207
  17. COZAAR [Concomitant]
     Active Substance: LOSARTAN POTASSIUM
     Indication: Product used for unknown indication
     Dosage: LAST ADMIN : 11-DEC-2023?FORM STRENGTH: 25 MG
     Route: 048
     Dates: start: 20231130, end: 20231211
  18. Dulcolax [Concomitant]
     Indication: Product used for unknown indication
     Dosage: 2 TAB (2 X 5 MG TAB), SWALLOW WHOLE , DO NOT CRUSH OR CHEW,  DAILY BEFORE BREAKFAST?FORM STRENGTH...
     Route: 048
     Dates: start: 20231203, end: 20231211
  19. VIDAZA [Concomitant]
     Active Substance: AZACITIDINE
     Indication: Product used for unknown indication
     Dosage: FORM STRENGTH: 140 MG
     Route: 042
     Dates: start: 20231208, end: 20231215
  20. NOXAFIL [Concomitant]
     Active Substance: POSACONAZOLE
     Indication: Product used for unknown indication
     Dosage: TIME INTERVAL: 0.33333333 DAYS: TAKE 3 TABS BY MOUTH DAILY?FORM STRENGTH: 100 MG
     Route: 048
     Dates: start: 20231208
  21. NOXAFIL [Concomitant]
     Active Substance: POSACONAZOLE
     Indication: Product used for unknown indication
     Dosage: LAST ADMIN DATE WAS DEC 2023?FORM STRENGTH: 300 MG
     Route: 048
     Dates: start: 20231202
  22. JARDIANCE [Concomitant]
     Active Substance: EMPAGLIFLOZIN
     Indication: Product used for unknown indication
     Dosage: 1 TAB (1X 10 MG TAB ) , EVERY MORNING, LAST ADMIN : 13-DEC-2023?FORM STRENGTH: 10 MG
     Route: 048
     Dates: start: 20231201, end: 20231213
  23. MIRALAX [Concomitant]
     Active Substance: POLYETHYLENE GLYCOL 3350
     Indication: Product used for unknown indication
     Dosage: MIX IN 8 OUNCES OF WATER OR JUICE?FORM STRENGTH: 17G
     Route: 048
     Dates: start: 20231204
  24. CRESTOR [Concomitant]
     Active Substance: ROSUVASTATIN CALCIUM
     Indication: Product used for unknown indication
     Dosage: DAIY AT BEDTIME, LAST ADMIN : 12-DEC-2023?FORM STRENGTH: 40 MG
     Route: 048
     Dates: start: 20231130, end: 20231212
  25. CYMBALTA [Concomitant]
     Active Substance: DULOXETINE HYDROCHLORIDE
     Indication: Product used for unknown indication
     Dosage: 30 MG BY MOUTH EVERY MORNING , DO NOT CRUSH , CHEW OR OPEN CAP, LAST ADMIN : 13- DEC-2023?FORM ST...
     Route: 048
     Dates: start: 20231204, end: 20231213
  26. CYMBALTA [Concomitant]
     Active Substance: DULOXETINE HYDROCHLORIDE
     Indication: Product used for unknown indication
     Dosage: 12 FRENCH OR LARGER FEEDING TUBE, PELLETS MAY CLOG 8 AND 10 FRENCH FEEDING TUBES?FORM STRENGTH: 3...
     Route: 048
  27. LYRICA [Concomitant]
     Active Substance: PREGABALIN
     Indication: Product used for unknown indication
     Dosage: TIME INTERVAL: 0.33333333 DAYS: FORM STRENGTH: 100 MG
     Route: 048
     Dates: start: 20231205, end: 20231213
  28. SODIUM CHLORIDE [Concomitant]
     Active Substance: SODIUM CHLORIDE
     Indication: Product used for unknown indication
     Dosage: 0.9 % SYRINE DOSE : 10-20 ML; AS DIRECTED?FORM STRENGTH: 0.9 MG
     Route: 042
     Dates: start: 20231201, end: 20231208
  29. SODIUM CHLORIDE [Concomitant]
     Active Substance: SODIUM CHLORIDE
     Indication: Product used for unknown indication
     Dosage: 0.9 % SYRINGE DOSE : 50 ML/HR ; CONTINUOUS?FORM STRENGTH: 0.9 MG
     Route: 042
     Dates: start: 202312
  30. ZYLOPRIM [Concomitant]
     Active Substance: ALLOPURINOL
     Indication: Product used for unknown indication
     Dosage: FORM STRENGTH: 300 MG?FREQUENCY TEXT: DAILY
     Route: 048
     Dates: start: 20231030
  31. LUMASON [Concomitant]
     Active Substance: SULFUR HEXAFLUORIDE
     Indication: Product used for unknown indication
     Route: 042
     Dates: start: 20231130, end: 20231130
  32. GEODON [Concomitant]
     Active Substance: ZIPRASIDONE HYDROCHLORIDE\ZIPRASIDONE MESYLATE
     Indication: Product used for unknown indication
     Dosage: FORM STRENGTH: 40 MG
     Route: 048
     Dates: start: 20231204
  33. GEODON [Concomitant]
     Active Substance: ZIPRASIDONE HYDROCHLORIDE\ZIPRASIDONE MESYLATE
     Indication: Product used for unknown indication
     Dosage: FORM STRENGTH: 80 MG
     Route: 048
  34. TYLENOL [Concomitant]
     Active Substance: ACETAMINOPHEN
     Indication: Product used for unknown indication
     Dosage: FORM STRENGTH: 650 MG
     Route: 048
     Dates: start: 20231130, end: 20231206
  35. FLOMAX [Concomitant]
     Active Substance: TAMSULOSIN HYDROCHLORIDE
     Indication: Product used for unknown indication
     Dosage: FORM STRENGTH: 0.4 MG
     Route: 048
     Dates: start: 20231205, end: 20231212
  36. DILAUDID [Concomitant]
     Active Substance: HYDROMORPHONE HYDROCHLORIDE
     Indication: Pain
     Dosage: LAST ADMIN : 13-DEC-2023?FORM STRENGTH: 4 MG
     Route: 048
     Dates: start: 20231203, end: 20231213
  37. DESYREL [Concomitant]
     Active Substance: TRAZODONE HYDROCHLORIDE
     Indication: Sleep disorder
     Dosage: TAKE 200 MG BY MOUTH AT BEDTIME AS NEEDED FOR SLEEP,LAST ADMIN DATE: 12-DEC-2023?FORM STRENGTH: 1...
     Route: 048
     Dates: start: 20231204, end: 20231212
  38. ATIVAN [Concomitant]
     Active Substance: LORAZEPAM
     Indication: Nausea
     Dosage: AS NEEDED?FORM STRENGTH: 1 MG
     Route: 042
     Dates: start: 20231208
  39. AZACITIDINE [Concomitant]
     Active Substance: AZACITIDINE
     Indication: Product used for unknown indication
     Dosage: FORM STRENGTH: 100 MG
  40. ZOFRAN [Concomitant]
     Active Substance: ONDANSETRON HYDROCHLORIDE
     Indication: Vomiting
     Dosage: 4 MG AS NEEDED?LAST ADMIN DATE WAS 2023?FORM STRENGTH: 4 MG
     Route: 042
     Dates: start: 20231130
  41. ZOFRAN [Concomitant]
     Active Substance: ONDANSETRON HYDROCHLORIDE
     Indication: Vomiting
     Dosage: 16 MG IN SODIUM CHLORIDE 0.9 % 58 ML IVPB?FORM STRENGTH: 16 MG
     Route: 042
     Dates: start: 20231208, end: 20231215
  42. COMPAZINE [Concomitant]
     Active Substance: PROCHLORPERAZINE MALEATE
     Indication: Vomiting
     Dosage: FORM STRENGTH: 10 MG
     Route: 042
     Dates: start: 20231208

REACTIONS (3)
  - Hospice care [Unknown]
  - Off label use [Unknown]
  - Dysphagia [Unknown]
